FAERS Safety Report 19259408 (Version 2)
Quarter: 2021Q4

REPORT INFORMATION
  Report Type: Report from Study
  Country: IE (occurrence: IE)
  Receive Date: 20210514
  Receipt Date: 20211015
  Transmission Date: 20220303
  Serious: Yes (Death, Hospitalization)
  Sender: FDA-Public Use
  Company Number: IE-PFIZER INC-2021531032

PATIENT
  Weight: 60.2 kg

DRUGS (7)
  1. GEMTUZUMAB OZOGAMICIN [Suspect]
     Active Substance: GEMTUZUMAB OZOGAMICIN
     Indication: Acute myeloid leukaemia
     Dosage: 5 MG (OTHER)
     Route: 042
     Dates: start: 20210202, end: 20210208
  2. CYTARABINE [Suspect]
     Active Substance: CYTARABINE
     Dosage: 3200 MG INFUSE OVER 4 HOURS
     Route: 042
     Dates: start: 20210227, end: 20210331
  3. IDARUBICIN HYDROCHLORIDE [Suspect]
     Active Substance: IDARUBICIN HYDROCHLORIDE
     Dosage: 13 MG INFUSE OVER 1 HOUR
     Route: 042
     Dates: start: 20210201, end: 20210303
  4. FLUDARABINE [Suspect]
     Active Substance: FLUDARABINE PHOSPHATE
     Dosage: UNK
     Route: 042
  5. POSACONAZOLE [Concomitant]
     Active Substance: POSACONAZOLE
     Indication: Antifungal prophylaxis
     Dosage: 300 MG, 1X/DAY (EVERY 24HRS)
     Route: 048
     Dates: start: 20210222, end: 20210227
  6. MYCOSTATIN [Concomitant]
     Active Substance: NYSTATIN
     Indication: Antifungal treatment
     Dosage: 1 ML, 4X/DAY
     Dates: start: 20210225, end: 20210226
  7. KIN MOUTHWASH [Concomitant]
     Indication: Dental care
     Dosage: 10 ML, 3X/DAY (EVERY 8 HOURS)
     Route: 048
     Dates: start: 20210224, end: 20210226

REACTIONS (1)
  - Febrile neutropenia [Recovered/Resolved]

NARRATIVE: CASE EVENT DATE: 20210308
